FAERS Safety Report 21290294 (Version 2)
Quarter: 2022Q3

REPORT INFORMATION
  Report Type: Spontaneous
  Country: JP (occurrence: JP)
  Receive Date: 20220902
  Receipt Date: 20220915
  Transmission Date: 20221027
  Serious: No
  Sender: FDA-Public Use
  Company Number: JP-ALLERGAN-2228661US

PATIENT
  Sex: Male

DRUGS (2)
  1. SILODOSIN [Suspect]
     Active Substance: SILODOSIN
     Indication: Product used for unknown indication
     Dosage: UNK
     Route: 048
  2. Ophthalmic product unspecified [Concomitant]
     Dosage: UNK

REACTIONS (1)
  - Cataract [Unknown]
